FAERS Safety Report 7619333-0 (Version None)
Quarter: 2011Q3

REPORT INFORMATION
  Report Type: 
  Country: None (occurrence: None)
  Receive Date: 20110719
  Receipt Date: 20110708
  Transmission Date: 20111222
  Serious: Yes (Hospitalization, Other)
  Sender: FDA-Public Use
  Company Number: US-BRISTOL-MYERS SQUIBB COMPANY-15890726

PATIENT
  Sex: Male

DRUGS (1)
  1. IPILIMUMAB [Suspect]
     Indication: ADENOCARCINOMA PANCREAS
     Dosage: LAST DOSE 31MAY2011

REACTIONS (2)
  - MELAENA [None]
  - DIARRHOEA [None]
